FAERS Safety Report 19659247 (Version 1)
Quarter: 2021Q3

REPORT INFORMATION
  Report Type: Spontaneous
  Country: CN (occurrence: CN)
  Receive Date: 20210805
  Receipt Date: 20210805
  Transmission Date: 20211014
  Serious: Yes (Life-Threatening, Other)
  Sender: FDA-Public Use
  Company Number: CN-SUN PHARMACEUTICAL INDUSTRIES LTD-2021R1-306704

PATIENT
  Age: 86 Year
  Sex: Male

DRUGS (7)
  1. OXALIPLATIN. [Suspect]
     Active Substance: OXALIPLATIN
     Indication: CHEMOTHERAPY
     Dosage: 100 MG/M2 , EVERY 3 WEEKS (DAY 1)
     Route: 065
  2. TRASTUZUMAB. [Suspect]
     Active Substance: TRASTUZUMAB
     Indication: CHEMOTHERAPY
     Dosage: 8 MG/KG ,  EVERY THREE WEEKS
     Route: 065
  3. OTERACIL [Suspect]
     Active Substance: OTERACIL
     Indication: CHEMOTHERAPY
     Dosage: 80 MILLIGRAM, DAILY
     Route: 065
  4. DOCETAXEL. [Concomitant]
     Active Substance: DOCETAXEL
     Indication: CHEMOTHERAPY
     Dosage: 60.0 MG/M2 , EVERY 3 WEEKS
     Route: 065
  5. GIMERACIL [Suspect]
     Active Substance: GIMERACIL
     Indication: CHEMOTHERAPY
     Dosage: 80 MILLIGRAM, DAILY
     Route: 065
  6. TEGAFUR [Suspect]
     Active Substance: TEGAFUR
     Indication: CHEMOTHERAPY
     Dosage: 80 MILLIGRAM, DAILY
     Route: 065
  7. TRASTUZUMAB. [Suspect]
     Active Substance: TRASTUZUMAB
     Dosage: 6 MG/KG ,  EVERY THREE WEEKS
     Route: 065

REACTIONS (3)
  - Drug ineffective [Unknown]
  - Myelosuppression [Recovered/Resolved]
  - Disease progression [Unknown]
